FAERS Safety Report 4906214-6 (Version None)
Quarter: 2006Q1

REPORT INFORMATION
  Report Type: 
  Country: None (occurrence: None)
  Receive Date: 20060207
  Receipt Date: 20060126
  Transmission Date: 20060701
  Serious: Yes (Hospitalization)
  Sender: FDA-Public Use
  Company Number: 2006003903

PATIENT
  Age: 81 Year
  Sex: Female
  Weight: 69 kg

DRUGS (2)
  1. AROMASIN [Suspect]
     Indication: BREAST CANCER FEMALE
     Dosage: 25 MG (25 MG, DAILY), ORAL
     Route: 048
     Dates: start: 20050325
  2. DIGOXIN [Concomitant]

REACTIONS (10)
  - ABDOMINAL PAIN [None]
  - BLOOD PRESSURE INCREASED [None]
  - DECREASED APPETITE [None]
  - HEART RATE INCREASED [None]
  - HYPERTENSION [None]
  - MALAISE [None]
  - MESENTERIC ARTERY THROMBOSIS [None]
  - NAUSEA [None]
  - RENAL FAILURE [None]
  - VOMITING [None]
